FAERS Safety Report 16110126 (Version 2)
Quarter: 2019Q2

REPORT INFORMATION
  Report Type: Report from Study
  Country: DE (occurrence: DE)
  Receive Date: 20190325
  Receipt Date: 20190403
  Transmission Date: 20190711
  Serious: Yes (Other)
  Sender: FDA-Public Use
  Company Number: DE-ROCHE-2287983

PATIENT
  Age: 60 Year
  Sex: Male
  Weight: 107 kg

DRUGS (3)
  1. OBINUTUZUMAB. [Suspect]
     Active Substance: OBINUTUZUMAB
     Indication: CHRONIC LYMPHOCYTIC LEUKAEMIA
     Dosage: NUMBER OF CYCLE: 8?LAST DOSE OF OBINUTUZUMAB 1000 MG PRIOR TO SAE ON 22/JAN/2019
     Route: 042
     Dates: start: 20180904
  2. VENETOCLAX. [Suspect]
     Active Substance: VENETOCLAX
     Indication: CHRONIC LYMPHOCYTIC LEUKAEMIA
     Dosage: NUMBER OF CYCLE: 8?LAST DOSE OF VENETOCLAX 400 MG PRIOR TO SAE ON 19/MAR/2019
     Route: 048
     Dates: start: 20180925
  3. VENETOCLAX. [Suspect]
     Active Substance: VENETOCLAX
     Dosage: NUMBER OF CYCLE: 8?LAST DOSE OF VENETOCLAX 400 MG PRIOR TO SAE ON 25/MAR/2019
     Route: 048
     Dates: start: 20190320

REACTIONS (1)
  - Hepatic enzyme increased [Not Recovered/Not Resolved]

NARRATIVE: CASE EVENT DATE: 20190320
